FAERS Safety Report 7641215-9 (Version None)
Quarter: 2011Q3

REPORT INFORMATION
  Report Type: 
  Country: None (occurrence: None)
  Receive Date: 20110728
  Receipt Date: 20110719
  Transmission Date: 20111222
  Serious: Yes (Hospitalization)
  Sender: FDA-Public Use
  Company Number: PHHY2011US66103

PATIENT
  Age: 28 Year
  Sex: Male

DRUGS (1)
  1. TOBI [Suspect]
     Dosage: UNK UKN, UNK

REACTIONS (1)
  - LUNG DISORDER [None]
